FAERS Safety Report 16689661 (Version 3)
Quarter: 2019Q3

REPORT INFORMATION
  Report Type: Spontaneous
  Country: CH (occurrence: CH)
  Receive Date: 20190809
  Receipt Date: 20190913
  Transmission Date: 20191004
  Serious: Yes (Hospitalization, Other)
  Sender: FDA-Public Use
  Company Number: CH-009507513-1908CHE003455

PATIENT
  Age: 47 Year
  Sex: Female

DRUGS (5)
  1. SIRDALUD [Concomitant]
     Active Substance: TIZANIDINE
     Dosage: 4 MILLIGRAM
  2. DUPHASTON [Concomitant]
     Active Substance: DYDROGESTERONE
     Dosage: 10 MILLIGRAM
  3. VENLAFAXINE HYDROCHLORIDE. [Concomitant]
     Active Substance: VENLAFAXINE HYDROCHLORIDE
     Indication: DEPRESSION
     Dosage: 150 MILLIGRAM
  4. QUETIAPINE FUMARATE. [Concomitant]
     Active Substance: QUETIAPINE FUMARATE
     Indication: DEPRESSION
     Dosage: 100 MILLIGRAM
  5. MAXALT [Suspect]
     Active Substance: RIZATRIPTAN BENZOATE
     Indication: MIGRAINE
     Dosage: 20 MILLIGRAM, UNK
     Route: 048
     Dates: start: 20170917, end: 20170917

REACTIONS (2)
  - Prinzmetal angina [Recovered/Resolved]
  - Acute coronary syndrome [Recovered/Resolved]

NARRATIVE: CASE EVENT DATE: 20170917
